FAERS Safety Report 13480532 (Version 1)
Quarter: 2017Q2

REPORT INFORMATION
  Report Type: Spontaneous
  Country: None (occurrence: GB)
  Receive Date: 20170425
  Receipt Date: 20170425
  Transmission Date: 20170830
  Serious: Yes (Other)
  Sender: FDA-Public Use
  Company Number: GB-XIROMED, LLC-1065863

PATIENT
  Sex: Female

DRUGS (12)
  1. DOMPERIDONE [Suspect]
     Active Substance: DOMPERIDONE
  2. CYCLIZINE [Suspect]
     Active Substance: CYCLIZINE
  3. ROPINIROLE. [Suspect]
     Active Substance: ROPINIROLE
  4. LANSOPRAZOLE. [Suspect]
     Active Substance: LANSOPRAZOLE
  5. CEREZYME [Suspect]
     Active Substance: IMIGLUCERASE
     Route: 041
  6. CITALOPRAM [Suspect]
     Active Substance: CITALOPRAM HYDROBROMIDE
  7. RIVASTIGMINE. [Suspect]
     Active Substance: RIVASTIGMINE
  8. CO-BENELDOPA [Suspect]
     Active Substance: BENSERAZIDE HYDROCHLORIDE\LEVODOPA
  9. QUETIAPINE FUMARATE. [Suspect]
     Active Substance: QUETIAPINE FUMARATE
  10. SENNA [Suspect]
     Active Substance: SENNA LEAF\SENNOSIDES\SENNOSIDES A AND B
  11. BISOPROLOL FUMARATE. [Suspect]
     Active Substance: BISOPROLOL FUMARATE
  12. LACTULOSE. [Suspect]
     Active Substance: LACTULOSE

REACTIONS (2)
  - Parkinsonism [Unknown]
  - Dizziness [Unknown]
